FAERS Safety Report 15455190 (Version 1)
Quarter: 2018Q3

REPORT INFORMATION
  Report Type: Spontaneous
  Country: US (occurrence: US)
  Receive Date: 20180925
  Receipt Date: 20180925
  Transmission Date: 20181010
  Serious: No
  Sender: FDA-Public Use
  Company Number: None

PATIENT
  Sex: Female

DRUGS (5)
  1. IBRANCE [Suspect]
     Active Substance: PALBOCICLIB
     Indication: BREAST CANCER FEMALE
     Route: 048
     Dates: start: 20170415
  2. OXYCODONE [Concomitant]
     Active Substance: OXYCODONE
  3. LETROZOLE. [Concomitant]
     Active Substance: LETROZOLE
  4. GABAPENTIN. [Concomitant]
     Active Substance: GABAPENTIN
  5. LASIX [Concomitant]
     Active Substance: FUROSEMIDE

REACTIONS (2)
  - Hypoaesthesia [None]
  - Paraesthesia [None]
